FAERS Safety Report 22037208 (Version 1)
Quarter: 2023Q1

REPORT INFORMATION
  Report Type: Spontaneous
  Country: US (occurrence: US)
  Receive Date: 20230226
  Receipt Date: 20230226
  Transmission Date: 20230418
  Serious: No
  Sender: FDA-Public Use
  Company Number: US-ELI_LILLY_AND_COMPANY-US202302009315

PATIENT
  Sex: Female

DRUGS (1)
  1. TRULICITY [Suspect]
     Active Substance: DULAGLUTIDE
     Indication: Product used for unknown indication
     Dosage: 0.75 MG, UNKNOWN
     Route: 065

REACTIONS (5)
  - Vaginal haemorrhage [Recovering/Resolving]
  - Oropharyngeal pain [Recovering/Resolving]
  - Neck pain [Recovering/Resolving]
  - Dysphonia [Recovered/Resolved]
  - Thyroid mass [Unknown]
